FAERS Safety Report 4991653-8 (Version None)
Quarter: 2006Q2

REPORT INFORMATION
  Report Type: 
  Country: None (occurrence: None)
  Receive Date: 20060502
  Receipt Date: 20060421
  Transmission Date: 20061013
  Serious: Yes (Other)
  Sender: FDA-Public Use
  Company Number: 2006007765

PATIENT
  Age: 19 Year
  Sex: Male
  Weight: 95 kg

DRUGS (3)
  1. ZOLOFT [Suspect]
     Indication: DEPRESSIVE SYMPTOM
     Dosage: 100 MG (1 IN 1 D), ORAL
     Route: 048
     Dates: start: 20050401, end: 20060116
  2. LOPERAMID                     (LOPERAMIDE HYDROCHLORIDE) [Concomitant]
  3. ASTONIN-H  (FLUDROCORTISONE) [Concomitant]

REACTIONS (8)
  - BLOOD PRESSURE ORTHOSTATIC ABNORMAL [None]
  - CONVULSION [None]
  - SINUS ARREST [None]
  - SKIN LACERATION [None]
  - SUPRAVENTRICULAR EXTRASYSTOLES [None]
  - SYNCOPE [None]
  - TINNITUS [None]
  - TUNNEL VISION [None]
